FAERS Safety Report 6544147-2 (Version None)
Quarter: 2010Q1

REPORT INFORMATION
  Report Type: 
  Country: None (occurrence: None)
  Receive Date: 20100120
  Receipt Date: 20090312
  Transmission Date: 20100710
  Serious: No
  Sender: FDA-Public Use
  Company Number: US-ALLERGAN-0903438US

PATIENT
  Sex: Female

DRUGS (4)
  1. PREDNISOLONE ACETATE [Suspect]
     Indication: EYE INFECTION
     Route: 047
     Dates: start: 20090311
  2. PREDNISOLONE ACETATE [Suspect]
     Indication: EYE IRRITATION
  3. BRIMONIDINE TARTRATE [Concomitant]
     Indication: DRUG USE FOR UNKNOWN INDICATION
  4. XALATAN [Concomitant]

REACTIONS (1)
  - VISION BLURRED [None]
